FAERS Safety Report 4624432-1 (Version None)
Quarter: 2005Q1

REPORT INFORMATION
  Report Type: 
  Country: None (occurrence: None)
  Receive Date: 20050330
  Receipt Date: 20050330
  Transmission Date: 20050727
  Serious: Yes (Other)
  Sender: FDA-Public Use
  Company Number: None

PATIENT
  Age: 44 Year
  Sex: Female
  Weight: 54.3 kg

DRUGS (4)
  1. CETUXIMAB 250MG/M2 BMS [Suspect]
     Indication: RECTAL CANCER
     Dosage: 250MG/M2   390    INTRAVENOU
     Route: 042
     Dates: start: 20050223, end: 20050328
  2. OXALIPLATIN [Concomitant]
  3. XELODA [Concomitant]
  4. RADIATION [Concomitant]

REACTIONS (1)
  - HYPOKALAEMIA [None]
